FAERS Safety Report 7558804-2 (Version None)
Quarter: 2011Q2

REPORT INFORMATION
  Report Type: 
  Country: None (occurrence: None)
  Receive Date: 20110621
  Receipt Date: 20110609
  Transmission Date: 20111010
  Serious: Yes (Hospitalization)
  Sender: FDA-Public Use
  Company Number: DE-AMGEN-DEUCT2011030572

PATIENT
  Sex: Female

DRUGS (2)
  1. PREDNISOLONE [Concomitant]
     Dosage: 20 MG, UNK
  2. ETANERCEPT [Suspect]
     Indication: RHEUMATOID ARTHRITIS
     Dosage: 25 MG, UNK
     Dates: start: 20070801

REACTIONS (1)
  - RHEUMATIC FEVER [None]
